FAERS Safety Report 18000540 (Version 4)
Quarter: 2021Q2

REPORT INFORMATION
  Report Type: Spontaneous
  Country: US (occurrence: US)
  Receive Date: 20200709
  Receipt Date: 20210624
  Transmission Date: 20210717
  Serious: Yes (Other)
  Sender: FDA-Public Use
  Company Number: US-GILEAD-2020-0478435

PATIENT
  Age: 39 Year
  Sex: Male
  Weight: 70.3 kg

DRUGS (14)
  1. TRUVADA [Suspect]
     Active Substance: EMTRICITABINE\TENOFOVIR DISOPROXIL FUMARATE
     Indication: PRODUCT USED FOR UNKNOWN INDICATION
     Dosage: UNK
     Route: 048
     Dates: start: 2004, end: 2007
  2. ZEMPLAR [Concomitant]
     Active Substance: PARICALCITOL
  3. VENOFER [Concomitant]
     Active Substance: IRON SUCROSE
  4. ACYCLOVIR [ACICLOVIR] [Concomitant]
     Active Substance: ACYCLOVIR
  5. PANTOPRAZOLE [Concomitant]
     Active Substance: PANTOPRAZOLE
  6. VIREAD [Suspect]
     Active Substance: TENOFOVIR DISOPROXIL FUMARATE
     Dosage: UNK
     Route: 048
     Dates: start: 20090304, end: 20190831
  7. AMOXICILLIN. [Concomitant]
     Active Substance: AMOXICILLIN
  8. NORVIR [Concomitant]
     Active Substance: RITONAVIR
  9. PREDNISONE. [Concomitant]
     Active Substance: PREDNISONE
  10. REYATAZ [Concomitant]
     Active Substance: ATAZANAVIR SULFATE
  11. HECTOROL [Concomitant]
     Active Substance: DOXERCALCIFEROL
  12. PARSABIV [Concomitant]
     Active Substance: ETELCALCETIDE HYDROCHLORIDE
  13. VIREAD [Suspect]
     Active Substance: TENOFOVIR DISOPROXIL FUMARATE
     Indication: HIV INFECTION
     Dosage: UNK
     Route: 048
     Dates: start: 2004, end: 20190831
  14. EPOGEN [Concomitant]
     Active Substance: ERYTHROPOIETIN

REACTIONS (3)
  - End stage renal disease [Not Recovered/Not Resolved]
  - Panic attack [Not Recovered/Not Resolved]
  - Renal failure [Unknown]

NARRATIVE: CASE EVENT DATE: 20160116
